FAERS Safety Report 4454493-4 (Version None)
Quarter: 2004Q3

REPORT INFORMATION
  Report Type: 
  Country: None (occurrence: None)
  Receive Date: 20040917
  Receipt Date: 20040917
  Transmission Date: 20050211
  Serious: Yes (Hospitalization)
  Sender: FDA-Public Use
  Company Number: None

PATIENT
  Sex: Male
  Weight: 95 kg

DRUGS (5)
  1. CIALIS [Suspect]
     Indication: DISTURBANCE IN SEXUAL AROUSAL
     Dosage: 20 MG IN THE AM ORAL
     Route: 048
     Dates: start: 20040826, end: 20040826
  2. CIALIS [Suspect]
     Indication: ERECTILE DYSFUNCTION
     Dosage: 20 MG IN THE AM ORAL
     Route: 048
     Dates: start: 20040826, end: 20040826
  3. FLOMAX [Concomitant]
  4. AVANDIA [Concomitant]
  5. HERBAL SEXUAL STIMULANT [Concomitant]

REACTIONS (7)
  - BLOOD GLUCOSE INCREASED [None]
  - BLOOD PRESSURE IMMEASURABLE [None]
  - COLD SWEAT [None]
  - DIZZINESS [None]
  - LOSS OF CONSCIOUSNESS [None]
  - PULSE PRESSURE DECREASED [None]
  - TUNNEL VISION [None]
